FAERS Safety Report 6370016-7 (Version None)
Quarter: 2009Q3

REPORT INFORMATION
  Report Type: 
  Country: None (occurrence: None)
  Receive Date: 20090923
  Receipt Date: 20070815
  Transmission Date: 20100115
  Serious: No
  Sender: FDA-Public Use
  Company Number: US-ASTRAZENECA-2006UW08061

PATIENT
  Age: 15830 Day
  Sex: Female
  Weight: 59.9 kg

DRUGS (16)
  1. SEROQUEL [Suspect]
     Indication: SCHIZOPHRENIA
     Route: 048
     Dates: start: 20020101, end: 20060410
  2. SEROQUEL [Suspect]
     Indication: DEPRESSION
     Route: 048
     Dates: start: 20020101, end: 20060410
  3. SEROQUEL [Suspect]
     Dosage: 25-600MG
     Route: 048
     Dates: start: 20000531
  4. SEROQUEL [Suspect]
     Dosage: 25-600MG
     Route: 048
     Dates: start: 20000531
  5. EFFEXOR [Concomitant]
  6. VISTARIL [Concomitant]
  7. BUSPAR [Concomitant]
  8. BENADRYL [Concomitant]
  9. ACETAMINOPHEN W/ CODEINE [Concomitant]
  10. NAPROXEN [Concomitant]
  11. TRAMADOL HCL [Concomitant]
  12. ERYTHROMYCIN [Concomitant]
  13. AMOXICILLIN TRIHYDRATE [Concomitant]
  14. TEMAZEPAM [Concomitant]
  15. CEPHALEXIN [Concomitant]
  16. IBUPROFEN [Concomitant]

REACTIONS (7)
  - ANXIETY [None]
  - CRYING [None]
  - DIABETES MELLITUS [None]
  - INSOMNIA [None]
  - PARANOIA [None]
  - SOMNOLENCE [None]
  - WEIGHT DECREASED [None]
